FAERS Safety Report 8523839-X (Version None)
Quarter: 2012Q3

REPORT INFORMATION
  Report Type: 
  Country: None (occurrence: None)
  Receive Date: 20120720
  Receipt Date: 20120712
  Transmission Date: 20120928
  Serious: Yes (Other)
  Sender: FDA-Public Use
  Company Number: US-BAYER-201015500NA

PATIENT
  Age: 18 Year
  Sex: Female
  Weight: 73 kg

DRUGS (9)
  1. YAZ [Suspect]
     Indication: CONTRACEPTION
     Dosage: UNK UNK, UNK
     Route: 048
     Dates: start: 20070201, end: 20090701
  2. YAZ [Suspect]
     Indication: GENITAL HAEMORRHAGE
     Dosage: UNK
     Dates: start: 20080201, end: 20090601
  3. DAILY VITAMINS [Concomitant]
     Dosage: ONE DAILY
     Dates: start: 19970101
  4. VICODIN [Concomitant]
     Indication: GALLBLADDER PAIN
     Dosage: 5MG ONCE DAILY OR AS NEEDED
     Dates: start: 20090701
  5. BENTYL [Concomitant]
     Dosage: 10 MG, QID
     Route: 048
     Dates: start: 20090713
  6. SERTRALINE HYDROCHLORIDE [Concomitant]
     Indication: DEPRESSION
     Dosage: 50 MG, QD
     Route: 048
     Dates: start: 20070101, end: 20090101
  7. GLUCOSAMINE [Concomitant]
     Dosage: 100 MG, DAILY
  8. ZOLOFT [Concomitant]
  9. CLARITIN [Concomitant]
     Indication: SEASONAL ALLERGY
     Dosage: UNK UNK, AS NEEDED

REACTIONS (8)
  - CHOLESTEROSIS [None]
  - SCAR [None]
  - CHOLELITHIASIS [None]
  - CHOLECYSTITIS CHRONIC [None]
  - DIARRHOEA [None]
  - GALLBLADDER DISORDER [None]
  - ABDOMINAL PAIN UPPER [None]
  - NAUSEA [None]
